FAERS Safety Report 6264631-9 (Version None)
Quarter: 2009Q3

REPORT INFORMATION
  Report Type: 
  Country: None (occurrence: None)
  Receive Date: 20090710
  Receipt Date: 20090701
  Transmission Date: 20100115
  Serious: Yes (Other)
  Sender: FDA-Public Use
  Company Number: GB-TEVA-200760ISR

PATIENT
  Age: 53 Year
  Sex: Male
  Weight: 95 kg

DRUGS (1)
  1. TRIMETHOPRIM [Suspect]
     Dates: start: 20090608, end: 20090622

REACTIONS (2)
  - MUSCULOSKELETAL STIFFNESS [None]
  - RASH [None]
